FAERS Safety Report 8343740-4 (Version None)
Quarter: 2012Q2

REPORT INFORMATION
  Report Type: 
  Country: None (occurrence: None)
  Receive Date: 20120508
  Receipt Date: 20120508
  Transmission Date: 20120825
  Serious: Yes (Other)
  Sender: FDA-Public Use
  Company Number: None

PATIENT
  Age: 41 Year
  Sex: Female
  Weight: 83.914 kg

DRUGS (1)
  1. MIDOL [Suspect]
     Indication: DYSMENORRHOEA
     Dosage: 2 CAPLETS
     Route: 048
     Dates: start: 20120402, end: 20120402

REACTIONS (4)
  - PRURITUS [None]
  - PANIC ATTACK [None]
  - ERYTHEMA [None]
  - HEART RATE INCREASED [None]
